FAERS Safety Report 6289423-6 (Version None)
Quarter: 2009Q3

REPORT INFORMATION
  Report Type: 
  Country: None (occurrence: None)
  Receive Date: 20090730
  Receipt Date: 20090723
  Transmission Date: 20100115
  Serious: Yes (Hospitalization, Other)
  Sender: FDA-Public Use
  Company Number: JP-BRISTOL-MYERS SQUIBB COMPANY-14542013

PATIENT
  Age: 68 Year
  Sex: Male

DRUGS (16)
  1. SPRYCEL [Suspect]
     Indication: CHRONIC MYELOID LEUKAEMIA
     Dosage: THERAPY DATES: 12FEB09-31MAR09,48D 140 MG 1APR09 AND INTRRUPTED ON 8APR09,8D
     Route: 048
     Dates: start: 20090212, end: 20090408
  2. ALBUMIN TANNATE [Suspect]
     Route: 048
     Dates: end: 20090417
  3. CYTARABINE [Concomitant]
     Dates: start: 20090107, end: 20090201
  4. HYDROXYUREA [Concomitant]
     Dates: start: 20090107, end: 20090201
  5. SILODOSIN [Concomitant]
     Route: 048
     Dates: end: 20090417
  6. LANSOPRAZOLE [Concomitant]
     Route: 048
  7. AMLODIPINE BESYLATE [Concomitant]
     Route: 048
  8. ALLOPURINOL [Concomitant]
     Route: 048
     Dates: end: 20090417
  9. ANTIBIOTIC [Concomitant]
     Route: 048
  10. POTASSIUM ASPARTATE [Concomitant]
     Dosage: POTASSIUM L-ASPARTATE
     Route: 048
     Dates: start: 20090228, end: 20090303
  11. CHLORPHENIRAMINE MALEATE [Concomitant]
     Dates: start: 20090214, end: 20090223
  12. LACTOMIN [Concomitant]
     Dates: start: 20090223
  13. FUROSEMIDE [Concomitant]
     Route: 042
     Dates: start: 20090214, end: 20090314
  14. GLUCOSE + ELECTROLYTES [Concomitant]
     Dosage: SOLUTION
     Dates: start: 20090216, end: 20090223
  15. SODIUM BICARBONATE [Concomitant]
     Dates: start: 20090216, end: 20090223
  16. MUCOSTA [Concomitant]
     Route: 048
     Dates: start: 20090228, end: 20090303

REACTIONS (13)
  - ANAEMIA [None]
  - BLOOD ALKALINE PHOSPHATASE INCREASED [None]
  - BLOOD CREATININE INCREASED [None]
  - GENERALISED OEDEMA [None]
  - HYPERURICAEMIA [None]
  - ILEUS PARALYTIC [None]
  - NEUTROPHIL COUNT DECREASED [None]
  - PERIPHERAL SENSORY NEUROPATHY [None]
  - PLATELET COUNT DECREASED [None]
  - PLEURAL EFFUSION [None]
  - RHINORRHOEA [None]
  - TUMOUR LYSIS SYNDROME [None]
  - WHITE BLOOD CELL COUNT DECREASED [None]
